FAERS Safety Report 13176198 (Version 1)
Quarter: 2017Q1

REPORT INFORMATION
  Report Type: Spontaneous
  Country: AU (occurrence: AU)
  Receive Date: 20170201
  Receipt Date: 20170201
  Transmission Date: 20170428
  Serious: Yes (Other)
  Sender: FDA-Public Use
  Company Number: AU-REGENERON PHARMACEUTICALS, INC.-2017-11153

PATIENT

DRUGS (3)
  1. EYLEA [Suspect]
     Active Substance: AFLIBERCEPT
     Indication: NEOVASCULAR AGE-RELATED MACULAR DEGENERATION
     Dosage: (BILATERAL)
     Route: 031
     Dates: start: 2014
  2. EYLEA [Suspect]
     Active Substance: AFLIBERCEPT
     Dosage: UNK UNK, Q6WK (BOTH EYES)
     Route: 031
     Dates: start: 201510
  3. EYLEA [Suspect]
     Active Substance: AFLIBERCEPT
     Dosage: UNK UNK, EXTENDED INTERVALS (BOTH EYES)
     Route: 031
     Dates: start: 201607, end: 2016

REACTIONS (5)
  - Macular fibrosis [Unknown]
  - Visual acuity reduced [Unknown]
  - Glaucoma [Not Recovered/Not Resolved]
  - Dry age-related macular degeneration [Unknown]
  - Subretinal fluid [Recovered/Resolved]

NARRATIVE: CASE EVENT DATE: 201510
